FAERS Safety Report 4300335-7 (Version None)
Quarter: 2004Q1

REPORT INFORMATION
  Report Type: 
  Country: None (occurrence: None)
  Receive Date: 20040218
  Receipt Date: 20040206
  Transmission Date: 20041129
  Serious: Yes (Hospitalization, Other)
  Sender: FDA-Public Use
  Company Number: 2003127203

PATIENT
  Sex: Male
  Weight: 81.6475 kg

DRUGS (13)
  1. DILANTIN [Suspect]
     Indication: EPILEPSY
     Dosage: 30 MG (DAILY), ORAL
     Route: 048
  2. PHENYTOIN [Suspect]
     Indication: EPILEPSY
     Dosage: 300 MG (TID), ORAL
     Route: 048
     Dates: end: 20030101
  3. PHENOBARBITAL TAB [Concomitant]
  4. PIROXICAM [Concomitant]
  5. MULTIVITAMIN [Concomitant]
  6. LONAZOLAC CALCIUM (LONAZOLAC CALCIUM) [Concomitant]
  7. METHYLSUFONYLMETHANE (METHYLSULFONYLMETHANE) [Concomitant]
  8. SELENIUM (SELENIUM) [Concomitant]
  9. TOCOPHEROL CONCENTRATE CAP [Concomitant]
  10. FOLIC ACID [Concomitant]
  11. GLUCOSAMINE (GLUCOSAMINE) [Concomitant]
  12. GENERAL NUTRIENTS [Concomitant]
  13. ALL OTHER THERAPEUTIC PRODUCTS [Concomitant]

REACTIONS (18)
  - ANKLE FRACTURE [None]
  - CONVULSION [None]
  - DEPRESSED LEVEL OF CONSCIOUSNESS [None]
  - DRUG INEFFECTIVE [None]
  - DRUG LEVEL DECREASED [None]
  - ECCHYMOSIS [None]
  - EXCORIATION [None]
  - EYELID PTOSIS [None]
  - FACE INJURY [None]
  - GRAND MAL CONVULSION [None]
  - HEAD INJURY [None]
  - PHARMACEUTICAL PRODUCT COMPLAINT [None]
  - RHONCHI [None]
  - SOMNOLENCE [None]
  - SUBDURAL HAEMATOMA [None]
  - TONGUE INJURY [None]
  - TOOTH INJURY [None]
  - WHITE BLOOD CELL COUNT INCREASED [None]
